FAERS Safety Report 8021328-2 (Version None)
Quarter: 2012Q1

REPORT INFORMATION
  Report Type: 
  Country: None (occurrence: None)
  Receive Date: 20120104
  Receipt Date: 20111221
  Transmission Date: 20120608
  Serious: Yes (Hospitalization)
  Sender: FDA-Public Use
  Company Number: JP-SANOFI-AVENTIS-2011SA084797

PATIENT
  Age: 76 Year
  Sex: Male
  Weight: 48 kg

DRUGS (8)
  1. URSO 250 [Concomitant]
     Indication: HEPATIC FUNCTION ABNORMAL
     Route: 048
  2. OXALIPLATIN [Suspect]
     Indication: GASTRIC CANCER RECURRENT
     Route: 041
     Dates: start: 20111011
  3. GIMERACIL/OTERACIL POTASSIUM/TEGAFUR [Suspect]
     Dosage: DOSE: DOSE REDUCED
     Route: 048
     Dates: start: 20111101
  4. PURSENNID /SCH/ [Concomitant]
     Indication: CONSTIPATION
     Dosage: 12-24 MG
     Route: 048
  5. OXALIPLATIN [Suspect]
     Route: 041
     Dates: start: 20111101
  6. GIMERACIL/OTERACIL POTASSIUM/TEGAFUR [Suspect]
     Indication: GASTRIC CANCER RECURRENT
     Route: 048
     Dates: start: 20111011
  7. GIMERACIL/OTERACIL POTASSIUM/TEGAFUR [Suspect]
     Dosage: DOSE: DOSE REDUCED
     Route: 048
     Dates: start: 20111129
  8. HOCHUUEKKITOU [Concomitant]
     Indication: FATIGUE
     Dosage: 2P
     Route: 048

REACTIONS (3)
  - PORTAL VENOUS GAS [None]
  - PNEUMONIA [None]
  - DIARRHOEA [None]
